FAERS Safety Report 9195671 (Version 2)
Quarter: 2013Q4

REPORT INFORMATION
  Report Type: Spontaneous
  Country: US (occurrence: None)
  Receive Date: 20120703
  Receipt Date: 20131226
  Transmission Date: 20140711
  Serious: No
  Sender: FDA-Public Use
  Company Number: PHEH2012US007328

PATIENT
  Sex: Female

DRUGS (1)
  1. GILENYA (FTY) CAPSULE [Suspect]
     Dosage: UNK UKN, UNK, ORAL
     Route: 048

REACTIONS (2)
  - Photophobia [None]
  - Maternal exposure during pregnancy [None]
